FAERS Safety Report 5235784-6 (Version None)
Quarter: 2007Q1

REPORT INFORMATION
  Report Type: 
  Country: None (occurrence: None)
  Receive Date: 20070212
  Receipt Date: 20070207
  Transmission Date: 20070707
  Serious: Yes (Life-Threatening)
  Sender: FDA-Public Use
  Company Number: US-MERCK-0612USA03534

PATIENT
  Age: 60 Year
  Sex: Male

DRUGS (4)
  1. PRINIVIL [Suspect]
     Indication: HYPERTENSION
     Route: 048
     Dates: start: 20061220, end: 20061220
  2. PRINIVIL [Suspect]
     Route: 065
  3. ZETIA [Concomitant]
     Route: 065
  4. ATENOLOL [Concomitant]
     Route: 065

REACTIONS (3)
  - ANAPHYLACTIC REACTION [None]
  - HYPERSENSITIVITY [None]
  - SWELLING FACE [None]
